FAERS Safety Report 7909108-7 (Version None)
Quarter: 2011Q4

REPORT INFORMATION
  Report Type: 
  Country: None (occurrence: None)
  Receive Date: 20111111
  Receipt Date: 20111110
  Transmission Date: 20120403
  Serious: Yes (Other)
  Sender: FDA-Public Use
  Company Number: DE-PFIZER INC-2007054949

PATIENT
  Age: 27 Year
  Sex: Male
  Weight: 90 kg

DRUGS (4)
  1. MINIRIN ^AVENTIS PHARMA^ [Concomitant]
     Dosage: 20 UG
     Route: 045
     Dates: start: 19890101
  2. LEVOTHYROXINE SODIUM [Concomitant]
     Dosage: 100 UG
     Route: 048
     Dates: start: 19920101
  3. SOMATROPIN [Suspect]
     Indication: HYPOPITUITARISM
     Dosage: 0.4 MG, 1X/DAY
     Dates: start: 20050202, end: 20070515
  4. HYDROCORTISONE [Concomitant]
     Dosage: 10 MG
     Route: 048
     Dates: start: 19890101

REACTIONS (2)
  - NEOPLASM RECURRENCE [None]
  - CRANIOPHARYNGIOMA [None]
